FAERS Safety Report 17222578 (Version 1)
Quarter: 2020Q1

REPORT INFORMATION
  Report Type: Spontaneous
  Country: US (occurrence: US)
  Receive Date: 20200102
  Receipt Date: 20200102
  Transmission Date: 20200409
  Serious: No
  Sender: FDA-Public Use
  Company Number: US-GLAXOSMITHKLINE-US2019AMR237618

PATIENT
  Sex: Female

DRUGS (1)
  1. NUCALA [Suspect]
     Active Substance: MEPOLIZUMAB
     Indication: HYPERSENSITIVITY
     Dosage: UNK
     Route: 065
     Dates: start: 2019, end: 201907

REACTIONS (3)
  - Product use in unapproved indication [Unknown]
  - Influenza like illness [Unknown]
  - Pain [Unknown]
